FAERS Safety Report 9260123 (Version 1)
Quarter: 2013Q2

REPORT INFORMATION
  Report Type: Spontaneous
  Country: CA (occurrence: CA)
  Receive Date: 20130429
  Receipt Date: 20130429
  Transmission Date: 20140414
  Serious: Yes (Life-Threatening, Hospitalization)
  Sender: FDA-Public Use
  Company Number: CA-JNJFOC-20120503411

PATIENT
  Age: 43 Year
  Sex: Male
  Weight: 54.6 kg

DRUGS (18)
  1. REMICADE [Suspect]
     Indication: ANKYLOSING SPONDYLITIS
     Dosage: 0-2-6 WEEK INDUCTION PHASE
     Route: 042
     Dates: start: 20120420
  2. REMICADE [Suspect]
     Indication: ANKYLOSING SPONDYLITIS
     Route: 042
     Dates: start: 20121024
  3. REMICADE [Suspect]
     Indication: ANKYLOSING SPONDYLITIS
     Route: 042
  4. REMICADE [Suspect]
     Indication: ANKYLOSING SPONDYLITIS
     Dosage: 0-2-6 WEEK INDUCTION PHASE
     Route: 042
  5. REMICADE [Suspect]
     Indication: ANKYLOSING SPONDYLITIS
     Dosage: AT 2ND WEEK OF INDUCTION PHASE
     Route: 042
     Dates: start: 20120502, end: 20120502
  6. REMICADE [Suspect]
     Indication: CROHN^S DISEASE
     Dosage: 0-2-6 WEEK INDUCTION PHASE
     Route: 042
     Dates: start: 20120420
  7. REMICADE [Suspect]
     Indication: CROHN^S DISEASE
     Route: 042
     Dates: start: 20121024
  8. REMICADE [Suspect]
     Indication: CROHN^S DISEASE
     Route: 042
  9. REMICADE [Suspect]
     Indication: CROHN^S DISEASE
     Dosage: 0-2-6 WEEK INDUCTION PHASE
     Route: 042
  10. REMICADE [Suspect]
     Indication: CROHN^S DISEASE
     Dosage: AT 2ND WEEK OF INDUCTION PHASE
     Route: 042
     Dates: start: 20120502, end: 20120502
  11. URSODIOL [Concomitant]
     Dosage: A DOSE IS A TAB
     Route: 065
  12. INDOCID [Concomitant]
     Route: 065
  13. PREVACID [Concomitant]
     Route: 065
  14. ENTOCORT [Concomitant]
     Route: 065
  15. BENADRYL [Concomitant]
     Indication: PREMEDICATION
     Route: 048
     Dates: start: 20120502
  16. ACETAMINOPHEN [Concomitant]
     Indication: PREMEDICATION
     Route: 048
     Dates: start: 20120502
  17. HYDROCORTISONE [Concomitant]
     Indication: PREMEDICATION
     Route: 042
  18. MEZAVANT [Concomitant]
     Route: 048

REACTIONS (19)
  - Tachycardia [Recovered/Resolved]
  - Infusion related reaction [Recovered/Resolved]
  - Dyspnoea [Recovered/Resolved]
  - Blood pressure decreased [Recovered/Resolved]
  - Intestinal operation [Recovering/Resolving]
  - Weight decreased [Recovering/Resolving]
  - Malaise [Recovering/Resolving]
  - Adverse event [Recovering/Resolving]
  - Pyrexia [Recovered/Resolved]
  - Flushing [Recovered/Resolved]
  - Hyperhidrosis [Recovered/Resolved]
  - Chills [Recovered/Resolved]
  - Cough [Recovering/Resolving]
  - Palpitations [Recovered/Resolved]
  - Hyperhidrosis [Recovered/Resolved]
  - Cold sweat [Recovered/Resolved]
  - Crepitations [Recovered/Resolved]
  - Heart rate increased [Recovered/Resolved]
  - Respiratory rate increased [Recovered/Resolved]
